FAERS Safety Report 12904928 (Version 1)
Quarter: 2016Q4

REPORT INFORMATION
  Report Type: Spontaneous
  Country: PL (occurrence: PL)
  Receive Date: 20161102
  Receipt Date: 20161102
  Transmission Date: 20170207
  Serious: Yes (Other)
  Sender: FDA-Public Use
  Company Number: PHHY2016PL148600

PATIENT
  Age: 67 Year
  Sex: Male

DRUGS (2)
  1. NILOTINIB [Suspect]
     Active Substance: NILOTINIB
     Indication: CHRONIC MYELOID LEUKAEMIA
     Dosage: 800 MG, QD
     Route: 065
     Dates: start: 20110215
  2. NILOTINIB [Suspect]
     Active Substance: NILOTINIB
     Dosage: 600 MG, QD
     Route: 065

REACTIONS (4)
  - Rash [Unknown]
  - Cerebral ischaemia [Unknown]
  - Ischaemic stroke [Unknown]
  - Quadriparesis [Unknown]

NARRATIVE: CASE EVENT DATE: 201311
